FAERS Safety Report 23586970 (Version 1)
Quarter: 2024Q1

REPORT INFORMATION
  Report Type: Spontaneous
  Country: ES (occurrence: None)
  Receive Date: 20240301
  Receipt Date: 20240301
  Transmission Date: 20240410
  Serious: Yes (Other)
  Sender: FDA-Public Use
  Company Number: 2024A050838

PATIENT
  Age: 55 Year
  Sex: Male
  Weight: 58 kg

DRUGS (12)
  1. OMEPRAZOLE [Interacting]
     Active Substance: OMEPRAZOLE
     Route: 048
     Dates: start: 20231226
  2. MEROPENEM [Interacting]
     Active Substance: MEROPENEM
     Indication: Haemophilus sepsis
     Dates: start: 20231222, end: 20240102
  3. MEROPENEM [Interacting]
     Active Substance: MEROPENEM
     Indication: Respiratory syncytial virus infection
     Dates: start: 20231222, end: 20240102
  4. MEROPENEM [Interacting]
     Active Substance: MEROPENEM
     Indication: Haemophilus sepsis
     Dates: start: 20240105, end: 20240110
  5. MEROPENEM [Interacting]
     Active Substance: MEROPENEM
     Indication: Respiratory syncytial virus infection
     Dates: start: 20240105, end: 20240110
  6. VANCOMYCIN [Interacting]
     Active Substance: VANCOMYCIN
     Indication: Lower respiratory tract infection
     Dates: start: 20240110, end: 20240110
  7. VANCOMYCIN [Interacting]
     Active Substance: VANCOMYCIN
     Indication: Lower respiratory tract infection
     Dates: start: 20240116
  8. VANCOMYCIN [Interacting]
     Active Substance: VANCOMYCIN
     Indication: Lower respiratory tract infection
     Dosage: EVERY 6 HOURS
     Dates: start: 20240125
  9. AZITHROMYCIN [Interacting]
     Active Substance: AZITHROMYCIN
     Indication: Lower respiratory tract infection
  10. GANCICLOVIR [Suspect]
     Active Substance: GANCICLOVIR
     Indication: Pneumonia cytomegaloviral
  11. GANCICLOVIR [Suspect]
     Active Substance: GANCICLOVIR
     Indication: Cytomegalovirus viraemia
  12. AMPHOTERICIN B [Concomitant]
     Active Substance: AMPHOTERICIN B

REACTIONS (1)
  - Pseudomembranous colitis [Recovered/Resolved]

NARRATIVE: CASE EVENT DATE: 20240115
